FAERS Safety Report 7078703-2 (Version None)
Quarter: 2010Q4

REPORT INFORMATION
  Report Type: 
  Country: None (occurrence: None)
  Receive Date: 20101101
  Receipt Date: 20101101
  Transmission Date: 20110411
  Serious: Yes (Other)
  Sender: FDA-Public Use
  Company Number: None

PATIENT
  Age: 65 Year
  Sex: Male
  Weight: 106.5953 kg

DRUGS (1)
  1. JANUVIA [Suspect]
     Indication: ABDOMINAL PAIN UPPER
     Dosage: ONE TABLET ONCE DAILY PO (JUST OVER A WEEK)
     Route: 048
     Dates: start: 20101020, end: 20101028

REACTIONS (1)
  - ABDOMINAL PAIN UPPER [None]
